FAERS Safety Report 7077586-4 (Version None)
Quarter: 2010Q4

REPORT INFORMATION
  Report Type: 
  Country: None (occurrence: None)
  Receive Date: 20101101
  Receipt Date: 20101025
  Transmission Date: 20110411
  Serious: Yes (Hospitalization)
  Sender: FDA-Public Use
  Company Number: US-ALEXION-A201000474

PATIENT
  Sex: Male

DRUGS (49)
  1. SOLIRIS [Suspect]
     Indication: HAEMOLYTIC URAEMIC SYNDROME
     Dosage: 300 MG, UNK
     Route: 042
     Dates: start: 20090609, end: 20090609
  2. SOLIRIS [Suspect]
     Dosage: 300 MG, UNK
     Route: 042
     Dates: start: 20090616, end: 20090616
  3. SOLIRIS [Suspect]
     Dosage: 300 MG, UNK
     Route: 042
     Dates: start: 20090630, end: 20090630
  4. SOLIRIS [Suspect]
     Dosage: 300 MG, UNK
     Route: 042
     Dates: start: 20090704, end: 20090704
  5. SOLIRIS [Suspect]
     Dosage: 300 MG, UNK
     Route: 042
     Dates: start: 20090710, end: 20090710
  6. SOLIRIS [Suspect]
     Dosage: 300 MG, UNK
     Route: 042
     Dates: start: 20090717, end: 20090717
  7. SOLIRIS [Suspect]
     Dosage: 300.000000 MG, UNK
     Route: 042
     Dates: start: 20090727, end: 20090727
  8. SOLIRIS [Suspect]
     Dosage: 300 MG, UNK
     Route: 042
     Dates: start: 20090730, end: 20090730
  9. SOLIRIS [Suspect]
     Dosage: 300 MG, UNK
     Route: 042
     Dates: start: 20090807, end: 20090807
  10. SOLIRIS [Suspect]
     Dosage: 300 MG, UNK
     Route: 042
     Dates: start: 20090814, end: 20090814
  11. SOLIRIS [Suspect]
     Dosage: 300 MG, UNK
     Route: 042
     Dates: start: 20090821, end: 20090821
  12. SOLIRIS [Suspect]
     Dosage: 300 MG, UNK
     Route: 042
     Dates: start: 20090904, end: 20090904
  13. SOLIRIS [Suspect]
     Dosage: 300 MG, UNK
     Route: 042
     Dates: start: 20090918, end: 20090918
  14. SOLIRIS [Suspect]
     Dosage: 300 MG, UNK
     Route: 042
     Dates: start: 20090928, end: 20090928
  15. SOLIRIS [Suspect]
     Dosage: 300 MG, UNK
     Route: 042
     Dates: start: 20091008, end: 20091008
  16. SOLIRIS [Suspect]
     Dosage: 300 MG, UNK
     Route: 042
     Dates: start: 20091019, end: 20091019
  17. SOLIRIS [Suspect]
     Dosage: 300 MG, UNK
     Route: 042
     Dates: start: 20091029, end: 20091029
  18. SOLIRIS [Suspect]
     Dosage: 300 MG, UNK
     Route: 042
     Dates: start: 20091109, end: 20091109
  19. SOLIRIS [Suspect]
     Dosage: 300 MG, UNK
     Route: 042
     Dates: start: 20091119, end: 20091119
  20. SOLIRIS [Suspect]
     Dosage: 300 MG, UNK
     Route: 042
     Dates: start: 20091130, end: 20091130
  21. SOLIRIS [Suspect]
     Dosage: 300 MG, UNK
     Route: 042
     Dates: start: 20091202, end: 20091202
  22. SOLIRIS [Suspect]
     Dosage: 300 MG, UNK
     Route: 042
     Dates: start: 20091216, end: 20091216
  23. SOLIRIS [Suspect]
     Dosage: 300 MG, UNK
     Route: 042
     Dates: start: 20091230, end: 20091230
  24. MENACTRA [Concomitant]
     Indication: IMMUNISATION
     Dosage: UNK
     Dates: start: 20090507, end: 20090607
  25. RIFAMPIN [Concomitant]
     Indication: PROPHYLAXIS
     Dosage: UNK
     Dates: start: 20090603, end: 20090601
  26. HEPARIN [Concomitant]
     Indication: ANTICOAGULANT THERAPY
     Dosage: UNK
     Dates: start: 20090413
  27. ALBUTEROL SULFATE [Concomitant]
     Indication: DYSPNOEA
     Dosage: UNK
     Dates: start: 20090529, end: 20091001
  28. POTASSIUM CHLORIDE [Concomitant]
     Indication: OEDEMA
     Dosage: UNK
     Dates: start: 20090529, end: 20090101
  29. LACTULOSE [Concomitant]
     Indication: CONSTIPATION
     Dosage: UNK
     Dates: start: 20090517, end: 20090614
  30. HYDRALAZINE HCL [Concomitant]
     Indication: HYPERTENSION
     Dosage: UNK
     Dates: start: 20090529, end: 20090625
  31. PRIMASOL [Concomitant]
     Indication: DIALYSIS
  32. PAPAVERINE HYDROCHLORIDE [Concomitant]
     Indication: ABDOMINAL PAIN
     Dosage: UNK
     Dates: start: 20090505, end: 20090604
  33. NYSTANTIN [Concomitant]
     Indication: HYPERTENSION
  34. OMEPRAZOLE [Concomitant]
     Indication: ABDOMINAL PAIN
     Dosage: UNK
     Dates: start: 20090525, end: 20090622
  35. NICARDIPINE HYDROCHLORIDE [Concomitant]
     Indication: HYPERTENSION
     Dosage: UNK
     Dates: start: 20090523, end: 20090607
  36. LEVETIRACETAM [Concomitant]
     Indication: CONVULSION
     Dosage: UNK
     Dates: start: 20090525, end: 20090622
  37. LEVETIRACETAM [Concomitant]
     Dosage: UNK
     Dates: start: 20090706, end: 20090904
  38. LABETALOL HCL [Concomitant]
     Indication: HYPERTENSION
     Dosage: UNK
     Dates: start: 20090524, end: 20090621
  39. EPOETIN ALFA [Concomitant]
     Indication: ANAEMIA
     Dosage: UNK
     Dates: start: 20090525, end: 20090619
  40. ETACRYNATE SODIUM [Concomitant]
     Indication: OEDEMA
     Dosage: UNK
     Dates: start: 20090524, end: 20090621
  41. DIAZEPAM [Concomitant]
     Indication: ANXIETY
     Dosage: UNK
     Dates: start: 20090525, end: 20090625
  42. CATAPRES                           /00171101/ [Concomitant]
     Indication: HYPERTENSION
     Dosage: UNK
     Dates: start: 20090525, end: 20090615
  43. CHLORAL HYDRATE [Concomitant]
     Indication: SEDATIVE THERAPY
     Dosage: UNK
     Dates: start: 20090519, end: 20090713
  44. CEFEPIME [Concomitant]
     Indication: BACTERIAL INFECTION
     Dosage: UNK
     Dates: start: 20090528, end: 20090902
  45. POLYVINYL ALCOHOL [Concomitant]
     Indication: DRY EYE
     Dosage: UNK
     Dates: start: 20090613, end: 20090812
  46. SIMETHICONE [Concomitant]
     Indication: ABDOMINAL PAIN
     Dosage: UNK
     Dates: start: 20090615, end: 20090814
  47. ACETAMINOPHEN [Concomitant]
     Indication: PAIN
     Dosage: UNK
     Dates: start: 20090515, end: 20090807
  48. AMPHOTERICIN B [Concomitant]
     Indication: RESPIRATORY TRACT INFECTION
     Dosage: UNK
     Dates: start: 20090413, end: 20091028
  49. AMPHOTERICIN B [Concomitant]
     Indication: FUNGAL INFECTION

REACTIONS (5)
  - FUNGAL INFECTION [None]
  - PERITONITIS [None]
  - RESPIRATORY TRACT INFECTION [None]
  - SEPSIS [None]
  - URINARY TRACT INFECTION [None]
